FAERS Safety Report 19275080 (Version 2)
Quarter: 2024Q4

REPORT INFORMATION
  Report Type: Report from Study
  Country: DE (occurrence: DE)
  Receive Date: 20210519
  Receipt Date: 20241211
  Transmission Date: 20250115
  Serious: Yes (Hospitalization)
  Sender: AMGEN
  Company Number: DE-ROCHE-2820813

PATIENT
  Age: 61 Year
  Sex: Female
  Weight: 78 kg

DRUGS (2)
  1. BEVACIZUMAB [Suspect]
     Active Substance: BEVACIZUMAB
     Indication: Breast cancer
     Dosage: ON 12/FEB/2021, RECEIVED LAST APPLICATION PRIOR EVENT WAS 1170 MG
     Route: 040
     Dates: start: 20200102, end: 20210212
  2. LETROZOLE [Suspect]
     Active Substance: LETROZOLE
     Indication: Breast cancer
     Dosage: ON 05/MAR/2021, RECEIVED LAST APPLICATION PRIOR EVENT WAS 2.5 MG
     Route: 065
     Dates: start: 20191121

REACTIONS (1)
  - Acute kidney injury [Recovered/Resolved]

NARRATIVE: CASE EVENT DATE: 20210305
